FAERS Safety Report 13911714 (Version 1)
Quarter: 2017Q3

REPORT INFORMATION
  Report Type: Spontaneous
  Country: US (occurrence: US)
  Receive Date: 20170828
  Receipt Date: 20170828
  Transmission Date: 20171127
  Serious: No
  Sender: FDA-Public Use
  Company Number: US-ROCHE-1142627

PATIENT
  Sex: Female

DRUGS (3)
  1. NUTROPIN AQ [Suspect]
     Active Substance: SOMATROPIN
     Indication: HYPOGAMMAGLOBULINAEMIA
     Route: 058
     Dates: start: 19990514
  2. NUTROPIN AQ [Suspect]
     Active Substance: SOMATROPIN
     Indication: BODY HEIGHT BELOW NORMAL
  3. NUTROPIN AQ [Suspect]
     Active Substance: SOMATROPIN
     Indication: DEVELOPMENTAL DELAY

REACTIONS (1)
  - Headache [Unknown]
